FAERS Safety Report 6493757-X (Version None)
Quarter: 2009Q4

REPORT INFORMATION
  Report Type: 
  Country: None (occurrence: None)
  Receive Date: 20091214
  Receipt Date: 20081103
  Transmission Date: 20100525
  Serious: Yes (Hospitalization)
  Sender: FDA-Public Use
  Company Number: US-BRISTOL-MYERS SQUIBB COMPANY-14344717

PATIENT
  Age: 46 Year
  Sex: Female
  Weight: 89 kg

DRUGS (13)
  1. ABILIFY [Suspect]
     Indication: BIPOLAR DISORDER
     Dosage: STARTED WITH 5 0R 10 MG IN JULY OR AUG08
     Dates: start: 20080801
  2. ABILIFY [Suspect]
     Indication: SCHIZOPHRENIA, PARANOID TYPE
     Dosage: STARTED WITH 5 0R 10 MG IN JULY OR AUG08
     Dates: start: 20080801
  3. EFFEXOR XR [Concomitant]
     Dosage: TAKEN FOR A WHILE
  4. NEURONTIN [Concomitant]
     Dates: start: 20080501
  5. VISTARIL [Concomitant]
     Dosage: TAKEN FOR ^FOR A LONG TIME^,
  6. CARTIA XT [Concomitant]
  7. KLONOPIN [Concomitant]
     Dates: start: 20080101
  8. ELAVIL [Concomitant]
     Dosage: TAKEN FOR ^FOR A WHILE^
     Route: 028
  9. IBUPROFEN [Concomitant]
     Dosage: TAKEN FOR 5 MONTHS
  10. DETROL LA [Concomitant]
  11. FUROSEMIDE [Concomitant]
  12. SOMA [Concomitant]
  13. FIORICET [Concomitant]

REACTIONS (8)
  - AMNESIA [None]
  - ANAEMIA [None]
  - APHASIA [None]
  - BLOOD SODIUM DECREASED [None]
  - DIZZINESS [None]
  - DRY THROAT [None]
  - OEDEMA PERIPHERAL [None]
  - STRESS URINARY INCONTINENCE [None]
